FAERS Safety Report 24162349 (Version 1)
Quarter: 2024Q3

REPORT INFORMATION
  Report Type: Spontaneous
  Country: US (occurrence: None)
  Receive Date: 20240731
  Receipt Date: 20240731
  Transmission Date: 20241017
  Serious: Yes (Disabling, Other)
  Sender: Public
  Company Number: None

PATIENT
  Age: 22 Year
  Sex: Male
  Weight: 62.1 kg

DRUGS (12)
  1. MINOCYCLINE [Suspect]
     Active Substance: MINOCYCLINE HYDROCHLORIDE
     Indication: Acne cystic
     Dosage: 1 CAPSULE TWICE A DAY ORAL
     Route: 048
     Dates: start: 20240718, end: 20240720
  2. CLARITIN [Concomitant]
     Active Substance: LORATADINE
  3. FINASTERIDE [Concomitant]
     Active Substance: FINASTERIDE
  4. ESTRADIOL TRANSDERMAL SYSTEM [Concomitant]
     Active Substance: ESTRADIOL
  5. SUMATRIPTAN [Concomitant]
     Active Substance: SUMATRIPTAN
  6. ONDANSETRON [Concomitant]
     Active Substance: ONDANSETRON
  7. FLONASE [Concomitant]
     Active Substance: FLUTICASONE PROPIONATE
  8. FLUCONAZOLE [Concomitant]
     Active Substance: FLUCONAZOLE
  9. XOPENEX [Concomitant]
     Active Substance: LEVALBUTEROL HYDROCHLORIDE
  10. ACETAMINOPHEN [Concomitant]
     Active Substance: ACETAMINOPHEN
  11. IBUPROFEN [Concomitant]
     Active Substance: IBUPROFEN
  12. VITAMIN D [Concomitant]
     Active Substance: VITAMIN D NOS

REACTIONS (12)
  - Nausea [None]
  - Dizziness [None]
  - Gait disturbance [None]
  - Dysstasia [None]
  - Vertigo [None]
  - Fall [None]
  - Autonomic nervous system imbalance [None]
  - Hypermobility syndrome [None]
  - Constipation [None]
  - Diarrhoea [None]
  - Migraine [None]
  - Eustachian tube dysfunction [None]

NARRATIVE: CASE EVENT DATE: 20240720
